FAERS Safety Report 18248414 (Version 1)
Quarter: 2020Q3

REPORT INFORMATION
  Report Type: Report from Study
  Country: CA (occurrence: CA)
  Receive Date: 20200909
  Receipt Date: 20200909
  Transmission Date: 20201103
  Serious: Yes (Hospitalization)
  Sender: FDA-Public Use
  Company Number: CA-JNJFOC-20191135963

PATIENT
  Age: 15 Year
  Sex: Male
  Weight: 57.4 kg

DRUGS (2)
  1. REMICADE [Suspect]
     Active Substance: INFLIXIMAB
     Indication: COLITIS ULCERATIVE
     Route: 042
     Dates: start: 20190102
  2. REMICADE [Suspect]
     Active Substance: INFLIXIMAB
     Dosage: ANOTHER 10 MG/KG RECEIVED ON 17?NOV?2019.
     Route: 042
     Dates: start: 20191112

REACTIONS (4)
  - Colitis ulcerative [Recovering/Resolving]
  - Product use issue [Unknown]
  - Drug level increased [Unknown]
  - Off label use [Unknown]

NARRATIVE: CASE EVENT DATE: 201911
